FAERS Safety Report 6007601-8 (Version None)
Quarter: 2008Q4

REPORT INFORMATION
  Report Type: 
  Country: None (occurrence: None)
  Receive Date: 20081217
  Receipt Date: 20080320
  Transmission Date: 20090506
  Serious: No
  Sender: FDA-Public Use
  Company Number: US-ASTRAZENECA-2008UW05667

PATIENT
  Age: 87 Year
  Sex: Female
  Weight: 52.6 kg

DRUGS (5)
  1. CRESTOR [Suspect]
     Route: 048
     Dates: start: 20080301
  2. ASPIRIN [Concomitant]
  3. GLIPIZIDE [Concomitant]
  4. DIOVAN HCT [Concomitant]
  5. NIFEDICAL [Concomitant]

REACTIONS (2)
  - BLOOD GLUCOSE INCREASED [None]
  - HOT FLUSH [None]
